FAERS Safety Report 6838070-3 (Version None)
Quarter: 2010Q3

REPORT INFORMATION
  Report Type: 
  Country: None (occurrence: None)
  Receive Date: 20100713
  Receipt Date: 20070530
  Transmission Date: 20110219
  Serious: No
  Sender: FDA-Public Use
  Company Number: US-PFIZER INC-2007044203

PATIENT
  Sex: Female
  Weight: 70.5 kg

DRUGS (7)
  1. CHANTIX [Suspect]
     Indication: SMOKING CESSATION THERAPY
     Dates: start: 20070401
  2. PRAVACHOL [Concomitant]
     Indication: BLOOD CHOLESTEROL ABNORMAL
  3. VALSARTAN [Concomitant]
     Indication: HYPERTENSION
  4. TRIAMTERENE [Concomitant]
  5. CARTIA XT [Concomitant]
  6. METFORMIN/PIOGLITAZONE [Concomitant]
     Indication: BLOOD GLUCOSE ABNORMAL
  7. PREVACID [Concomitant]

REACTIONS (2)
  - FLATULENCE [None]
  - NAUSEA [None]
